FAERS Safety Report 25476975 (Version 1)
Quarter: 2025Q2

REPORT INFORMATION
  Report Type: Report from Study
  Country: US (occurrence: US)
  Receive Date: 20250625
  Receipt Date: 20250625
  Transmission Date: 20250716
  Serious: Yes (Other)
  Sender: TAKEDA
  Company Number: US-TAKEDA-2024TUS122132

PATIENT
  Age: 41 Year
  Sex: Female

DRUGS (27)
  1. FRUQUINTINIB [Suspect]
     Active Substance: FRUQUINTINIB
     Indication: Colon cancer
  2. FRUQUINTINIB [Suspect]
     Active Substance: FRUQUINTINIB
  3. FRUQUINTINIB [Suspect]
     Active Substance: FRUQUINTINIB
  4. BASAGLAR KWIKPEN [Concomitant]
     Active Substance: INSULIN GLARGINE
  5. DOXYCYCLINE HYCLATE [Concomitant]
     Active Substance: DOXYCYCLINE HYCLATE
  6. CLEOCIN T [Concomitant]
     Active Substance: CLINDAMYCIN PHOSPHATE
  7. FAMOTIDINE [Concomitant]
     Active Substance: FAMOTIDINE
  8. OMEPRAZOLE [Concomitant]
     Active Substance: OMEPRAZOLE
  9. PRAVASTATIN [Concomitant]
     Active Substance: PRAVASTATIN
  10. PIOGLITAZONE [Concomitant]
     Active Substance: PIOGLITAZONE
  11. METFORMIN [Concomitant]
     Active Substance: METFORMIN HYDROCHLORIDE
  12. IBUPROFEN [Concomitant]
     Active Substance: IBUPROFEN
  13. SCOPOLAMINE [Concomitant]
     Active Substance: SCOPOLAMINE
     Dosage: 1 MILLIGRAM, Q72H
  14. LORAZEPAM [Concomitant]
     Active Substance: LORAZEPAM
  15. ONDANSETRON HYDROCHLORIDE [Concomitant]
     Active Substance: ONDANSETRON HYDROCHLORIDE
  16. PROCHLORPERAZINE MALEATE [Concomitant]
     Active Substance: PROCHLORPERAZINE MALEATE
  17. NOVOLOG [Concomitant]
     Active Substance: INSULIN ASPART
  18. VENTOLIN HFA [Concomitant]
     Active Substance: ALBUTEROL SULFATE
  19. HYDROXYZINE HYDROCHLORIDE [Concomitant]
     Active Substance: HYDROXYZINE HYDROCHLORIDE
  20. LORATADINE [Concomitant]
     Active Substance: LORATADINE
     Indication: Allergy prophylaxis
  21. EPIPEN [Concomitant]
     Active Substance: EPINEPHRINE
  22. AIRBORNE [Concomitant]
     Active Substance: HERBALS\MINERALS\VITAMINS
  23. LYSINE [Concomitant]
     Active Substance: LYSINE
  24. VITAMIN D [Concomitant]
     Active Substance: VITAMIN D NOS
  25. FERROUS SULFATE [Concomitant]
     Active Substance: FERROUS SULFATE
  26. BIOFREEZE [Concomitant]
     Active Substance: MENTHOL
  27. Oramagicrx [Concomitant]

REACTIONS (16)
  - Colon cancer [Unknown]
  - Pain [Recovered/Resolved]
  - Chills [Recovered/Resolved]
  - Dysphagia [Recovered/Resolved]
  - Salivary hypersecretion [Recovered/Resolved]
  - Skin ulcer [Recovered/Resolved]
  - Skin fissures [Not Recovered/Not Resolved]
  - Bronchitis [Recovering/Resolving]
  - Oral discomfort [Recovered/Resolved]
  - Blood bilirubin increased [Unknown]
  - Nasopharyngitis [Recovered/Resolved]
  - Fatigue [Recovered/Resolved]
  - Weight decreased [Recovered/Resolved]
  - Oral pain [Recovered/Resolved]
  - Decreased appetite [Recovered/Resolved]
  - Stomatitis [Not Recovered/Not Resolved]

NARRATIVE: CASE EVENT DATE: 20241205
